FAERS Safety Report 20714971 (Version 1)
Quarter: 2022Q2

REPORT INFORMATION
  Report Type: Spontaneous
  Country: US (occurrence: None)
  Receive Date: 20220415
  Receipt Date: 20220415
  Transmission Date: 20220721
  Serious: Yes (Hospitalization)
  Sender: FDA-Public Use
  Company Number: None

PATIENT
  Sex: Female

DRUGS (1)
  1. METHOTREXATE [Suspect]
     Active Substance: METHOTREXATE
     Indication: Gastrointestinal disorder
     Dosage: FREQUENCY : WEEKLY;?
     Route: 048
     Dates: start: 20210226

REACTIONS (2)
  - Pruritus [None]
  - Therapy interrupted [None]
